FAERS Safety Report 9216165 (Version 1)
Quarter: 2013Q2

REPORT INFORMATION
  Report Type: Spontaneous
  Country: US (occurrence: US)
  Receive Date: 20130408
  Receipt Date: 20130408
  Transmission Date: 20140414
  Serious: No
  Sender: FDA-Public Use
  Company Number: US-BAYER-2013-036553

PATIENT
  Sex: Male

DRUGS (11)
  1. LEVITRA [Suspect]
     Route: 048
  2. WARFARIN [Concomitant]
  3. ZOCOR [Concomitant]
  4. COREG [Concomitant]
  5. LISINOPRIL [Concomitant]
  6. BABY ASPIRIN [Concomitant]
  7. SYNTHROID [Concomitant]
  8. VITAMIIN C [Concomitant]
  9. CALCIUM [Concomitant]
  10. VITAMIN B3 [Concomitant]
  11. NORVASC [Concomitant]

REACTIONS (1)
  - Drug ineffective [None]
